FAERS Safety Report 7313905-9 (Version None)
Quarter: 2011Q1

REPORT INFORMATION
  Report Type: 
  Country: None (occurrence: None)
  Receive Date: 20110225
  Receipt Date: 20110225
  Transmission Date: 20110831
  Serious: Yes (Hospitalization)
  Sender: FDA-Public Use
  Company Number: PL-ELI_LILLY_AND_COMPANY-PL201006005002

PATIENT
  Sex: Male
  Weight: 50 kg

DRUGS (9)
  1. OTHER PHARMA COMPANY INV DRUG [Suspect]
     Indication: NON-SMALL CELL LUNG CANCER
     Dosage: 800 MG, 2 IN 3 WEEKS
     Route: 042
     Dates: start: 20100531
  2. ATROVENT [Concomitant]
     Indication: CHRONIC OBSTRUCTIVE PULMONARY DISEASE
     Dosage: 40 MG, 4/D
  3. HELICID [Concomitant]
     Indication: PROPHYLAXIS
     Dosage: 20 MG, DAILY (1/D)
  4. KETONAL [Concomitant]
     Indication: PAIN
     Dosage: 100 MG, 2/D
     Route: 048
  5. TRAMAL [Concomitant]
     Indication: PAIN
     Dosage: 100 MG, 2/D
     Route: 048
  6. CALCIUM GLUCONATE [Concomitant]
     Indication: PROPHYLAXIS
     Dosage: 500 ML, UNK
     Route: 042
  7. CISPLATIN [Suspect]
     Indication: NON-SMALL CELL LUNG CANCER
     Dosage: 112 MG, ONE IN THREE WEEKS
     Route: 042
     Dates: start: 20100531
  8. THEOSPIREX [Concomitant]
     Indication: CHRONIC OBSTRUCTIVE PULMONARY DISEASE
     Dosage: 300 MG, 2/D
     Route: 048
  9. GEMCITABINE HYDROCHLORIDE [Suspect]
     Indication: NON-SMALL CELL LUNG CANCER
     Dosage: 1875 MG, 2 IN 3 WEEK
     Route: 042
     Dates: start: 20100531

REACTIONS (2)
  - HAEMOPTYSIS [None]
  - PYREXIA [None]
